FAERS Safety Report 5738463-1 (Version None)
Quarter: 2008Q2

REPORT INFORMATION
  Report Type: 
  Country: None (occurrence: None)
  Receive Date: 20080513
  Receipt Date: 20080430
  Transmission Date: 20081010
  Serious: Yes (Hospitalization)
  Sender: FDA-Public Use
  Company Number: 2007BI025506

PATIENT
  Age: 36 Year
  Sex: Female
  Weight: 90.7194 kg

DRUGS (12)
  1. TYSABRI [Suspect]
     Indication: MULTIPLE SCLEROSIS
     Dosage: 300 MG; QM; IV
     Route: 042
     Dates: start: 20070201, end: 20071101
  2. AVONEX [Concomitant]
  3. BACTROBAN [Concomitant]
  4. PERCOCET [Concomitant]
  5. MECLIZINE [Concomitant]
  6. BACLOFEN [Concomitant]
  7. AMBIEN [Concomitant]
  8. OXYBUTYNIN CHLORIDE [Concomitant]
  9. ACIPHEX [Concomitant]
  10. PAXIL [Concomitant]
  11. DOCUSATE [Concomitant]
  12. ADVIL [Concomitant]

REACTIONS (15)
  - ABSCESS LIMB [None]
  - CONDITION AGGRAVATED [None]
  - DIZZINESS [None]
  - DYSAESTHESIA [None]
  - IMMUNOSUPPRESSION [None]
  - MULTIPLE SCLEROSIS [None]
  - NAUSEA [None]
  - OPPORTUNISTIC INFECTION [None]
  - OPTIC NEURITIS [None]
  - PARAESTHESIA [None]
  - STAPHYLOCOCCAL ABSCESS [None]
  - URTICARIA [None]
  - VISUAL DISTURBANCE [None]
  - VOMITING [None]
  - VULVAL ABSCESS [None]
